FAERS Safety Report 8829888 (Version 1)
Quarter: 2012Q4

REPORT INFORMATION
  Report Type: Spontaneous
  Country: US (occurrence: None)
  Receive Date: 20121005
  Receipt Date: 20121005
  Transmission Date: 20130627
  Serious: No
  Sender: FDA-Public Use
  Company Number: None

PATIENT
  Age: 52 Year
  Sex: Female
  Weight: 58.97 kg

DRUGS (1)
  1. LIVALO [Suspect]
     Indication: HIGH CHOLESTEROL
     Route: 048
     Dates: start: 20120202, end: 20120907

REACTIONS (9)
  - Rash [None]
  - Rash [None]
  - Rash [None]
  - Rash [None]
  - Insomnia [None]
  - Anxiety [None]
  - Depression [None]
  - Nightmare [None]
  - Partner stress [None]
